FAERS Safety Report 25400728 (Version 2)
Quarter: 2025Q2

REPORT INFORMATION
  Report Type: Report from Study
  Country: US (occurrence: US)
  Receive Date: 20250605
  Receipt Date: 20250611
  Transmission Date: 20250716
  Serious: Yes (Other)
  Sender: EISAI
  Company Number: US-Eisai-EC-2025-190250

PATIENT
  Age: 75 Year
  Sex: Female
  Weight: 77.6 kg

DRUGS (18)
  1. LECANEMAB [Suspect]
     Active Substance: LECANEMAB
     Indication: Dementia Alzheimer^s type
     Dates: start: 20230802, end: 20230822
  2. LECANEMAB [Suspect]
     Active Substance: LECANEMAB
     Dates: start: 20230919, end: 20230919
  3. LECANEMAB [Suspect]
     Active Substance: LECANEMAB
     Dates: start: 20231024, end: 20240813
  4. LECANEMAB [Suspect]
     Active Substance: LECANEMAB
     Dates: start: 20240827, end: 20240827
  5. LECANEMAB [Suspect]
     Active Substance: LECANEMAB
     Dates: start: 20240910
  6. ASPIRIN [Concomitant]
     Active Substance: ASPIRIN
     Indication: Transient ischaemic attack
     Dates: start: 201909
  7. LISINOPRIL [Concomitant]
     Active Substance: LISINOPRIL
     Indication: Hypertension
     Dates: start: 201910, end: 202406
  8. HYDROCHLOROTHIAZIDE [Concomitant]
     Active Substance: HYDROCHLOROTHIAZIDE
     Indication: Hypertension
     Dates: start: 201910, end: 202406
  9. GLUCOSAMINE [Concomitant]
     Active Substance: GLUCOSAMINE
     Indication: Osteoarthritis
     Dates: start: 201911
  10. IBUPROFEN [Concomitant]
     Active Substance: IBUPROFEN
     Indication: Analgesic therapy
     Dates: start: 201911
  11. CHONDORITIN [Concomitant]
     Indication: Osteoarthritis
     Dates: start: 201911
  12. BIOTIN [Concomitant]
     Active Substance: BIOTIN
     Indication: Supplementation therapy
     Dates: start: 202010
  13. CHOLECALCIFEROL [Concomitant]
     Active Substance: CHOLECALCIFEROL
     Indication: Supplementation therapy
     Dates: start: 202010
  14. CYANOCOBALAMIN [Concomitant]
     Active Substance: CYANOCOBALAMIN
     Indication: Supplementation therapy
     Dates: start: 202202
  15. ESTRADIOL [Concomitant]
     Active Substance: ESTRADIOL
     Indication: Menopausal symptoms
     Dates: start: 202204
  16. DONEPEZIL [Concomitant]
     Active Substance: DONEPEZIL
     Indication: Dementia Alzheimer^s type
     Dates: start: 202210
  17. OXYBUTYNIN [Concomitant]
     Active Substance: OXYBUTYNIN
     Indication: Hypertonic bladder
     Dates: start: 202310, end: 202406
  18. AMLODIPINE [Concomitant]
     Active Substance: AMLODIPINE BESYLATE
     Indication: Hypertension
     Dates: start: 202405, end: 202406

REACTIONS (1)
  - Cerebral haemorrhage [Not Recovered/Not Resolved]

NARRATIVE: CASE EVENT DATE: 20240903
